FAERS Safety Report 16349706 (Version 1)
Quarter: 2019Q2

REPORT INFORMATION
  Report Type: Spontaneous
  Country: FR (occurrence: FR)
  Receive Date: 20190523
  Receipt Date: 20190523
  Transmission Date: 20190711
  Serious: Yes (Hospitalization)
  Sender: FDA-Public Use
  Company Number: FR-ASCEND THERAPEUTICS-2067388

PATIENT
  Age: 69 Year
  Sex: Female

DRUGS (2)
  1. ESTROGEL [Suspect]
     Active Substance: ESTRADIOL
     Indication: HORMONE REPLACEMENT THERAPY
     Route: 003
     Dates: end: 20190416
  2. LUTENYL (NOMEGESTROL ACETATE)?INDICATION FOR USE: HORMONE REPLACEMENT [Suspect]
     Active Substance: NOMEGESTROL ACETATE
     Route: 048
     Dates: end: 20190416

REACTIONS (1)
  - Pulmonary embolism [Recovering/Resolving]
